FAERS Safety Report 17939723 (Version 1)
Quarter: 2020Q2

REPORT INFORMATION
  Report Type: Spontaneous
  Country: DE (occurrence: DE)
  Receive Date: 20200624
  Receipt Date: 20200624
  Transmission Date: 20200714
  Serious: Yes (Hospitalization)
  Sender: FDA-Public Use
  Company Number: DE-MYLANLABS-2020M1057461

PATIENT
  Age: 73 Year
  Sex: Male

DRUGS (10)
  1. DULOXETINE. [Suspect]
     Active Substance: DULOXETINE
     Indication: PRODUCT USED FOR UNKNOWN INDICATION
     Dosage: 30 MG, 1-0-0-0, KAPSELN
     Route: 048
  2. ACETYLSALICYLIC ACID [Suspect]
     Active Substance: ASPIRIN
     Indication: PRODUCT USED FOR UNKNOWN INDICATION
     Dosage: 100 MILLIGRAM 0-1-0-0
     Route: 048
  3. EZETIMIBE. [Concomitant]
     Active Substance: EZETIMIBE
     Dosage: 100 MILLIGRAM 1-0-0-0
     Route: 048
  4. RAMIPRIL. [Concomitant]
     Active Substance: RAMIPRIL
     Dosage: 5 MILLIGRAM 1-0-0-0
     Route: 048
  5. SIMVASTATIN. [Concomitant]
     Active Substance: SIMVASTATIN
     Dosage: 20 MG, 0-0-1-0, TABLETTEN
     Route: 048
  6. METAMIZOL                          /06276701/ [Concomitant]
     Active Substance: METAMIZOLE
     Dosage: 500 MG/ML, BEI BEDARF, TROPFEN
     Route: 048
  7. CIPROFLOXACIN. [Suspect]
     Active Substance: CIPROFLOXACIN
     Indication: PRODUCT USED FOR UNKNOWN INDICATION
     Dosage: UNK, BID
     Route: 048
  8. SITAGLIPTIN [Concomitant]
     Active Substance: SITAGLIPTIN
     Dosage: 50 MG, 0.5-0-0-0, TABLETTEN
     Route: 048
  9. CARVEDILOL. [Concomitant]
     Active Substance: CARVEDILOL
     Dosage: 25 MG, 0.5-0-0.5-0, TABLETTEN
     Route: 048
  10. PANTOPRAZOL                        /01263201/ [Concomitant]
     Active Substance: PANTOPRAZOLE
     Dosage: 40 MG, 1-0-0-0, TABLETTEN
     Route: 048

REACTIONS (3)
  - Pallor [Unknown]
  - Anaemia [Unknown]
  - General physical health deterioration [Unknown]
